FAERS Safety Report 9461202 (Version 1)
Quarter: 2013Q3

REPORT INFORMATION
  Report Type: Spontaneous
  Country: FR (occurrence: FR)
  Receive Date: 20130816
  Receipt Date: 20130816
  Transmission Date: 20140515
  Serious: Yes (Hospitalization, Other)
  Sender: FDA-Public Use
  Company Number: FR-009507513-1308FRA003062

PATIENT
  Age: 21 Year
  Sex: Female

DRUGS (5)
  1. DIPROSONE [Suspect]
     Indication: ECZEMA
     Dosage: UNK
     Route: 003
     Dates: start: 201306, end: 20130616
  2. NOVORAPID [Concomitant]
     Indication: ECZEMA
     Dosage: UNK
  3. LANTUS [Concomitant]
     Dosage: UNK
  4. ECLARAN [Concomitant]
     Dosage: UNK
     Dates: start: 201302
  5. ETHINYL ESTRADIOL (+) LEVONORGESTREL [Concomitant]

REACTIONS (1)
  - Diabetic ketoacidosis [Recovered/Resolved]
